FAERS Safety Report 5334197-6 (Version None)
Quarter: 2007Q2

REPORT INFORMATION
  Report Type: 
  Country: None (occurrence: None)
  Receive Date: 20070523
  Receipt Date: 20070523
  Transmission Date: 20071010
  Serious: Yes (Other)
  Sender: FDA-Public Use
  Company Number: None

PATIENT
  Age: 80 Year
  Sex: Female
  Weight: 54.4316 kg

DRUGS (1)
  1. VANCOMYCIN [Suspect]
     Indication: CELLULITIS
     Dosage: 1 GRAM EVERY 5 DAYS IV
     Route: 042
     Dates: start: 20070425, end: 20070521

REACTIONS (2)
  - PRURITUS GENERALISED [None]
  - RASH [None]
